FAERS Safety Report 15959368 (Version 1)
Quarter: 2019Q1

REPORT INFORMATION
  Report Type: Spontaneous
  Country: BR (occurrence: BR)
  Receive Date: 20190214
  Receipt Date: 20190214
  Transmission Date: 20190417
  Serious: Yes (Other)
  Sender: FDA-Public Use
  Company Number: BR-AMGEN-BRASP2014024549

PATIENT
  Age: 61 Year
  Sex: Female
  Weight: 75 kg

DRUGS (7)
  1. ENBREL [Suspect]
     Active Substance: ETANERCEPT
     Indication: RHEUMATOID ARTHRITIS
     Dosage: 50 MG, WEEKLY
     Route: 058
     Dates: start: 201207
  2. VIMOVO [Concomitant]
     Active Substance: ESOMEPRAZOLE MAGNESIUM\NAPROXEN
     Dosage: UNK
  3. HYDROCHLOROTHIAZIDE. [Concomitant]
     Active Substance: HYDROCHLOROTHIAZIDE
     Dosage: 50 MG, ONCE DAILY
  4. ENBREL [Suspect]
     Active Substance: ETANERCEPT
     Dosage: 50 MG, WEEKLY (1 APPLICATION FOR WEEK)
     Route: 065
  5. METHOTREXATE. [Concomitant]
     Active Substance: METHOTREXATE
     Dosage: 12.4 MG, WEEKLY
  6. ENBREL [Suspect]
     Active Substance: ETANERCEPT
     Dosage: 50 MG, WEEKLY (1 APPLICATION FOR WEEK)
     Route: 065
  7. PROPANOLOL [Concomitant]
     Active Substance: PROPRANOLOL HYDROCHLORIDE
     Dosage: 40 MG, TWICE DAILY

REACTIONS (13)
  - Fatigue [Recovering/Resolving]
  - Diabetes mellitus [Not Recovered/Not Resolved]
  - Pulmonary hypertension [Unknown]
  - Inflammation of wound [Recovered/Resolved]
  - Pain in extremity [Recovered/Resolved]
  - Wrong technique in product usage process [Unknown]
  - Myocardial bridging [Unknown]
  - Mitral valve calcification [Not Recovered/Not Resolved]
  - Product use issue [Unknown]
  - Coronary artery disease [Unknown]
  - Left ventricular hypertrophy [Unknown]
  - Wound [Recovered/Resolved]
  - Diastolic dysfunction [Unknown]

NARRATIVE: CASE EVENT DATE: 2016
